FAERS Safety Report 24342746 (Version 1)
Quarter: 2024Q3

REPORT INFORMATION
  Report Type: Spontaneous
  Country: NL (occurrence: NL)
  Receive Date: 20240920
  Receipt Date: 20240920
  Transmission Date: 20241016
  Serious: Yes (Other)
  Sender: SANDOZ
  Company Number: NL-GlaxoSmithKline-B0504411A

PATIENT
  Age: 24 Year
  Sex: Female

DRUGS (6)
  1. AZATHIOPRINE [Suspect]
     Active Substance: AZATHIOPRINE
     Indication: Liver transplant
     Dosage: 75MG PER DAY
     Route: 065
     Dates: start: 199003, end: 200404
  2. AZATHIOPRINE [Suspect]
     Active Substance: AZATHIOPRINE
     Dosage: UNK
     Route: 065
     Dates: start: 199003, end: 200404
  3. TACROLIMUS [Suspect]
     Active Substance: TACROLIMUS
     Indication: Product used for unknown indication
     Dosage: UNK
     Route: 065
     Dates: start: 200404
  4. CYCLOSPORINE [Concomitant]
     Active Substance: CYCLOSPORINE
     Indication: Liver transplant
     Dosage: UNK
     Route: 065
  5. PREDNISONE [Concomitant]
     Active Substance: PREDNISONE
     Indication: Liver transplant
     Dosage: UNK
     Route: 065
     Dates: start: 199003
  6. PREDNISONE [Concomitant]
     Active Substance: PREDNISONE
     Indication: Product used for unknown indication
     Dosage: UNK
     Route: 065
     Dates: start: 199003

REACTIONS (11)
  - Nodular regenerative hyperplasia [Unknown]
  - Gamma-glutamyltransferase increased [Unknown]
  - Splenomegaly [Unknown]
  - Platelet count decreased [Unknown]
  - Portal hypertensive gastropathy [Unknown]
  - Oesophageal varices haemorrhage [Unknown]
  - Ascites [Unknown]
  - Hepatic vein thrombosis [Unknown]
  - Transaminases increased [Unknown]
  - Haematemesis [Unknown]
  - Blood alkaline phosphatase increased [Unknown]

NARRATIVE: CASE EVENT DATE: 19960901
